FAERS Safety Report 7194923 (Version 6)
Quarter: 2012Q4

REPORT INFORMATION
  Report Type: 
  Country: AU (occurrence: AU)
  Receive Date: 20091201
  Receipt Date: 20120829
  Transmission Date: 20130627
  Serious: Yes (Hospitalization)
  Sender: FDA-Public Use
  Company Number: PHHY2009AU50566

PATIENT
  Age: 48 Year
  Sex: Female

DRUGS (2)
  1. CLOZARIL [Suspect]
     Dosage: 600 mg, daily
     Route: 048
     Dates: start: 19910607
  2. CLOZARIL [Suspect]
     Dosage: 700 mg, daily
     Route: 048
     Dates: start: 19940607

REACTIONS (7)
  - Schizophrenia [Unknown]
  - Hallucination [Unknown]
  - Paranoia [Unknown]
  - Schizophrenia, paranoid type [Recovering/Resolving]
  - Condition aggravated [Unknown]
  - Tooth abscess [Unknown]
  - Treatment noncompliance [None]
